FAERS Safety Report 5700325-3 (Version None)
Quarter: 2008Q2

REPORT INFORMATION
  Report Type: 
  Country: None (occurrence: None)
  Receive Date: 20080410
  Receipt Date: 20080403
  Transmission Date: 20081010
  Serious: Yes (Other)
  Sender: FDA-Public Use
  Company Number: B0515670A

PATIENT
  Sex: Male

DRUGS (2)
  1. IMIGRAN [Suspect]
     Indication: DRUG USE FOR UNKNOWN INDICATION
     Route: 065
     Dates: start: 20020101
  2. LITHIUM CARBONATE [Concomitant]
     Dosage: 400MG THREE TIMES PER DAY
     Route: 065

REACTIONS (5)
  - ACROPHOBIA [None]
  - COGNITIVE DISORDER [None]
  - DISORIENTATION [None]
  - HALLUCINATION [None]
  - PERSONALITY CHANGE [None]
